FAERS Safety Report 4998050-X (Version None)
Quarter: 2006Q2

REPORT INFORMATION
  Report Type: 
  Country: None (occurrence: None)
  Receive Date: 20060510
  Receipt Date: 20060117
  Transmission Date: 20061013
  Serious: Yes (Hospitalization, Other)
  Sender: FDA-Public Use
  Company Number: US-MERCK-0601USA02195

PATIENT
  Age: 45 Year
  Sex: Male
  Weight: 177 kg

DRUGS (3)
  1. VIOXX [Suspect]
     Route: 048
     Dates: start: 20020515, end: 20030401
  2. METOPROLOL [Concomitant]
     Route: 065
  3. LASIX [Concomitant]
     Route: 065

REACTIONS (1)
  - LACUNAR INFARCTION [None]
